FAERS Safety Report 19357688 (Version 1)
Quarter: 2021Q2

REPORT INFORMATION
  Report Type: Spontaneous
  Country: US (occurrence: US)
  Receive Date: 20210527
  Receipt Date: 20210527
  Transmission Date: 20210717
  Serious: Yes (Death)
  Sender: FDA-Public Use
  Company Number: None

PATIENT
  Age: 55 Year
  Sex: Female
  Weight: 67.2 kg

DRUGS (10)
  1. GLUCOSAMINE?CHONDROITIN [Concomitant]
     Active Substance: CHONDROITIN SULFATE (BOVINE)\GLUCOSAMINE SULFATE
  2. METHOTREXATE PF 25 [Concomitant]
  3. PHENTERMINE. [Concomitant]
     Active Substance: PHENTERMINE
  4. MVI TABLET [Concomitant]
  5. REMICADE [Suspect]
     Active Substance: INFLIXIMAB
  6. LOSARTAN. [Concomitant]
     Active Substance: LOSARTAN
  7. FOLIC ACID. [Concomitant]
     Active Substance: FOLIC ACID
  8. UCERIS [Concomitant]
     Active Substance: BUDESONIDE
  9. CELEBREX [Concomitant]
     Active Substance: CELECOXIB
  10. CETIRIZINE [Concomitant]
     Active Substance: CETIRIZINE HYDROCHLORIDE

REACTIONS (4)
  - Lethargy [None]
  - Hepatic failure [None]
  - Renal failure [None]
  - Infection [None]

NARRATIVE: CASE EVENT DATE: 20200909
